FAERS Safety Report 5937188-7 (Version None)
Quarter: 2008Q4

REPORT INFORMATION
  Report Type: 
  Country: None (occurrence: None)
  Receive Date: 20081031
  Receipt Date: 20081023
  Transmission Date: 20090506
  Serious: Yes (Other)
  Sender: FDA-Public Use
  Company Number: US-ROCHE-593287

PATIENT
  Age: 80 Year
  Sex: Female

DRUGS (6)
  1. BONIVA [Suspect]
     Indication: DRUG USE FOR UNKNOWN INDICATION
     Dosage: LAST DOSE TAKEN FOUR MONTHS AGO
     Route: 065
     Dates: end: 20080601
  2. SERTRALINE [Concomitant]
  3. LISINOPRIL [Concomitant]
  4. SIMVASTATIN [Concomitant]
  5. NIASPAN [Concomitant]
  6. POTASSIUM SUPPLEMENT [Concomitant]

REACTIONS (1)
  - MULTIPLE MYELOMA [None]
